FAERS Safety Report 23564868 (Version 2)
Quarter: 2024Q1

REPORT INFORMATION
  Report Type: Report from Study
  Country: US (occurrence: US)
  Receive Date: 20240226
  Receipt Date: 20240308
  Transmission Date: 20240409
  Serious: Yes (Other)
  Sender: FDA-Public Use
  Company Number: US-GILEAD-2024-0663022

PATIENT
  Sex: Male

DRUGS (1)
  1. BICTEGRAVIR\EMTRICITABINE\TENOFOVIR ALAFENAMIDE [Suspect]
     Active Substance: BICTEGRAVIR\EMTRICITABINE\TENOFOVIR ALAFENAMIDE
     Indication: HIV infection
     Dosage: 275 MG, QD
     Route: 048

REACTIONS (3)
  - Blindness [Not Recovered/Not Resolved]
  - Traumatic fracture [Not Recovered/Not Resolved]
  - Amnesia [Not Recovered/Not Resolved]
